FAERS Safety Report 10991180 (Version 2)
Quarter: 2015Q2

REPORT INFORMATION
  Report Type: Report from Study
  Country: CA (occurrence: CA)
  Receive Date: 20150406
  Receipt Date: 20150423
  Transmission Date: 20150821
  Serious: Yes (Death, Hospitalization)
  Sender: FDA-Public Use
  Company Number: CA-JNJFOC-20150306685

PATIENT
  Age: 73 Year
  Sex: Male
  Weight: 86.18 kg

DRUGS (1)
  1. STELARA [Suspect]
     Active Substance: USTEKINUMAB
     Indication: PSORIASIS
     Route: 058
     Dates: start: 20150208

REACTIONS (10)
  - Death [Fatal]
  - Influenza like illness [Unknown]
  - Renal failure [Unknown]
  - Inflammation [Unknown]
  - Hepatic failure [Unknown]
  - Abdominal infection [Unknown]
  - Joint swelling [Unknown]
  - Neck pain [Unknown]
  - Condition aggravated [Unknown]
  - Lethargy [Unknown]

NARRATIVE: CASE EVENT DATE: 201503
